FAERS Safety Report 10005196 (Version 1)
Quarter: 2014Q1

REPORT INFORMATION
  Report Type: Spontaneous
  Country: US (occurrence: US)
  Receive Date: 20140312
  Receipt Date: 20140312
  Transmission Date: 20141002
  Serious: No
  Sender: FDA-Public Use
  Company Number: US-INCYTE CORPORATION-2013IN002787

PATIENT
  Sex: Female
  Weight: 92.97 kg

DRUGS (1)
  1. JAKAFI [Suspect]
     Dosage: 25 MG, BID
     Route: 048
     Dates: start: 201310

REACTIONS (1)
  - Blood glucose decreased [Unknown]
